FAERS Safety Report 13714278 (Version 8)
Quarter: 2018Q2

REPORT INFORMATION
  Report Type: Report from Study
  Country: US (occurrence: US)
  Receive Date: 20170704
  Receipt Date: 20180417
  Transmission Date: 20180711
  Serious: Yes (Other)
  Sender: FDA-Public Use
  Company Number: US-AMGEN-USASL2017098772

PATIENT
  Age: 76 Year
  Sex: Female

DRUGS (3)
  1. REPATHA [Suspect]
     Active Substance: EVOLOCUMAB
     Indication: TYPE IIA HYPERLIPIDAEMIA
     Dosage: 140 MG, Q2WK
     Route: 065
     Dates: start: 201703
  2. REPATHA [Suspect]
     Active Substance: EVOLOCUMAB
     Indication: PROPHYLAXIS
  3. REPATHA [Suspect]
     Active Substance: EVOLOCUMAB
     Indication: BLOOD CHOLESTEROL INCREASED

REACTIONS (21)
  - Productive cough [Unknown]
  - Nasopharyngitis [Unknown]
  - Dysphonia [Unknown]
  - Vomiting [Recovering/Resolving]
  - Upper respiratory tract congestion [Not Recovered/Not Resolved]
  - Dyspnoea [Unknown]
  - Sinus disorder [Not Recovered/Not Resolved]
  - Chronic kidney disease [Unknown]
  - Oropharyngeal pain [Unknown]
  - Dizziness [Unknown]
  - Single functional kidney [Unknown]
  - Rhinorrhoea [Recovering/Resolving]
  - Dizziness postural [Recovering/Resolving]
  - Throat irritation [Recovering/Resolving]
  - Hypertension [Recovered/Resolved]
  - Hypersensitivity [Not Recovered/Not Resolved]
  - Weight decreased [Unknown]
  - Lung neoplasm [Not Recovered/Not Resolved]
  - Blood pressure orthostatic [Not Recovered/Not Resolved]
  - Drug dose omission [Unknown]
  - Lethargy [Unknown]

NARRATIVE: CASE EVENT DATE: 201612
